FAERS Safety Report 4301612-6 (Version None)
Quarter: 2004Q1

REPORT INFORMATION
  Report Type: 
  Country: None (occurrence: None)
  Receive Date: 20040223
  Receipt Date: 20030905
  Transmission Date: 20041129
  Serious: Yes (Disabling)
  Sender: FDA-Public Use
  Company Number: US-BRISTOL-MYERS SQUIBB COMPANY-12375200

PATIENT
  Age: 69 Year
  Sex: Male
  Weight: 84 kg

DRUGS (3)
  1. PRAVACHOL [Suspect]
     Indication: CORONARY ARTERIAL STENT INSERTION
     Route: 048
     Dates: start: 20030710
  2. PLAVIX [Suspect]
     Indication: CORONARY ARTERIAL STENT INSERTION
     Dosage: CLOPIDOGREL WAS HELD FOR THREE DAYS AND RESTARTED.
     Route: 048
     Dates: start: 20030723, end: 20040101
  3. METOPROLOL SUCCINATE [Concomitant]
     Dates: start: 20030710

REACTIONS (9)
  - ABDOMINAL PAIN [None]
  - BODY TEMPERATURE INCREASED [None]
  - DEPRESSION [None]
  - DIZZINESS [None]
  - GROIN PAIN [None]
  - HYPERTENSION [None]
  - SERUM FERRITIN INCREASED [None]
  - SPLENIC HAEMORRHAGE [None]
  - SPLENOMEGALY [None]
